FAERS Safety Report 7415485-6 (Version None)
Quarter: 2011Q2

REPORT INFORMATION
  Report Type: 
  Country: None (occurrence: None)
  Receive Date: 20110414
  Receipt Date: 20110330
  Transmission Date: 20111010
  Serious: Yes (Hospitalization, Other)
  Sender: FDA-Public Use
  Company Number: FR-BAYER-2011-027941

PATIENT
  Age: 63 Year
  Sex: Male
  Weight: 92 kg

DRUGS (9)
  1. PRAVIGARD PAC (COPACKAGED) [Concomitant]
     Indication: DYSLIPIDAEMIA
     Dosage: 40 MG, UNK
     Dates: start: 20091201, end: 20101001
  2. XENETIX [Concomitant]
     Indication: COMPUTERISED TOMOGRAM
     Dosage: 140 ML, UNK
     Dates: start: 20101208
  3. LANTUS [Concomitant]
     Indication: TYPE 2 DIABETES MELLITUS
     Dosage: 20 U, UNK
     Dates: start: 20091201
  4. METFORMINE [Concomitant]
     Indication: TYPE 2 DIABETES MELLITUS
     Dosage: 3000 MG, UNK
     Dates: start: 20091201
  5. AVLOCARDYL [Concomitant]
     Indication: VARICES OESOPHAGEAL
     Dosage: 160 MG, UNK
     Dates: start: 20100901
  6. DOTAREM [Concomitant]
     Indication: NUCLEAR MAGNETIC RESONANCE IMAGING
     Dosage: 20 ML, UNK
     Dates: start: 20100831, end: 20101208
  7. SORAFENIB (RAF KINASE INHIBITOR) [Suspect]
     Indication: HEPATIC NEOPLASM MALIGNANT
     Dosage: 400 MG, QD
     Route: 048
     Dates: start: 20100914
  8. BLINDED SORAFENIB (RAF KINASE INHIBITOR) [Suspect]
     Indication: HEPATIC NEOPLASM MALIGNANT
     Dosage: 150 MG, QD
     Route: 048
     Dates: start: 20100914
  9. TRANXENE [Concomitant]
     Indication: ANXIETY
     Dosage: INTERMITTENT
     Dates: start: 20100101, end: 20101001

REACTIONS (1)
  - ASCITES [None]
